FAERS Safety Report 18421587 (Version 1)
Quarter: 2020Q4

REPORT INFORMATION
  Report Type: Spontaneous
  Country: US (occurrence: US)
  Receive Date: 20201023
  Receipt Date: 20201023
  Transmission Date: 20210114
  Serious: No
  Sender: FDA-Public Use
  Company Number: US-BIOGEN-2020BI00852044

PATIENT
  Age: 38 Year
  Sex: Female

DRUGS (10)
  1. TECFIDERA [Suspect]
     Active Substance: DIMETHYL FUMARATE
     Indication: MULTIPLE SCLEROSIS
     Dosage: START PACK, FOR 7 DAYS
     Route: 048
     Dates: start: 20200302
  2. TECFIDERA [Suspect]
     Active Substance: DIMETHYL FUMARATE
     Route: 048
     Dates: start: 20200320
  3. HUMIRA [Suspect]
     Active Substance: ADALIMUMAB
     Indication: PRODUCT USED FOR UNKNOWN INDICATION
     Route: 065
  4. ARMODAFINIL. [Concomitant]
     Active Substance: ARMODAFINIL
     Dosage: TAKE ONE TABLET ORALLY EVERY MORNING
     Route: 048
  5. ALLEGRA [Concomitant]
     Active Substance: FEXOFENADINE HYDROCHLORIDE
     Route: 048
  6. TECFIDERA [Suspect]
     Active Substance: DIMETHYL FUMARATE
     Route: 048
     Dates: start: 20200313, end: 20200319
  7. MIRENA [Concomitant]
     Active Substance: LEVONORGESTREL
     Dosage: 1 EACH BY INTRAUTERINE ROUTE ONCE (5 YEARS) IUD
     Route: 015
  8. BIOTIN [Concomitant]
     Active Substance: BIOTIN
     Dosage: PATIENT TAKING DIFFERENTLY:TAKE 5000 MG BY MOUTH DAILY
     Route: 048
  9. VITAMIN D3 [Concomitant]
     Active Substance: CHOLECALCIFEROL
     Dosage: 2000 UNITS QD
     Route: 048
  10. MOTRIN [Concomitant]
     Active Substance: IBUPROFEN
     Indication: PAIN
     Dosage: EVERY 6 HOURS AS NEEDED
     Route: 048

REACTIONS (22)
  - Faecal volume decreased [Not Recovered/Not Resolved]
  - Faecal volume increased [Unknown]
  - Productive cough [Unknown]
  - Multiple allergies [Unknown]
  - Gastrointestinal disorder [Unknown]
  - Musculoskeletal stiffness [Unknown]
  - Feeling hot [Not Recovered/Not Resolved]
  - Dyspnoea [Unknown]
  - Flushing [Unknown]
  - Abdominal pain [Unknown]
  - Decreased appetite [Unknown]
  - Abnormal faeces [Unknown]
  - Peroneal nerve palsy [Unknown]
  - Clumsiness [Unknown]
  - Vomiting [Not Recovered/Not Resolved]
  - Product dose omission issue [Unknown]
  - Pain in extremity [Unknown]
  - Diarrhoea [Recovered/Resolved]
  - Fatigue [Unknown]
  - Band sensation [Unknown]
  - Frequent bowel movements [Not Recovered/Not Resolved]
  - Dizziness [Not Recovered/Not Resolved]

NARRATIVE: CASE EVENT DATE: 202003
